FAERS Safety Report 8772912 (Version 1)
Quarter: 2012Q4

REPORT INFORMATION
  Report Type: Report from Study
  Country: CA (occurrence: CA)
  Receive Date: 20120907
  Receipt Date: 20120907
  Transmission Date: 20130627
  Serious: Yes (Other)
  Sender: FDA-Public Use
  Company Number: CA-JNJFOC-20120814718

PATIENT
  Age: 21 Year
  Sex: Female
  Weight: 49.9 kg

DRUGS (6)
  1. REMICADE [Suspect]
     Indication: CROHN^S DISEASE
     Route: 042
     Dates: start: 20120208
  2. PREDNISONE [Concomitant]
     Route: 048
  3. PENTASA [Concomitant]
     Dosage: 2 tabs
     Route: 048
  4. VITAMIN D [Concomitant]
     Route: 065
  5. TRICYCLEN [Concomitant]
     Route: 065
  6. TYLENOL EXTRA STRENGTH [Concomitant]
     Dosage: as necessary
     Route: 065

REACTIONS (4)
  - Vomiting [Not Recovered/Not Resolved]
  - Diarrhoea [Not Recovered/Not Resolved]
  - Nausea [Not Recovered/Not Resolved]
  - Pain [Not Recovered/Not Resolved]
